FAERS Safety Report 13835875 (Version 2)
Quarter: 2017Q3

REPORT INFORMATION
  Report Type: Spontaneous
  Country: US (occurrence: US)
  Receive Date: 20170804
  Receipt Date: 20170804
  Transmission Date: 20171127
  Serious: Yes (Other)
  Sender: FDA-Public Use
  Company Number: US-PFIZER INC-2017337992

PATIENT
  Age: 46 Year
  Sex: Female

DRUGS (6)
  1. ALBUTEROL. [Suspect]
     Active Substance: ALBUTEROL
     Dosage: UNK
  2. DEXTROMETHORPHAN HYDROBROMIDE. [Suspect]
     Active Substance: DEXTROMETHORPHAN HYDROBROMIDE
     Dosage: UNK
  3. CLONAZEPAM. [Suspect]
     Active Substance: CLONAZEPAM
     Dosage: UNK
     Dates: start: 20170803
  4. SERTRALINE HCL [Suspect]
     Active Substance: SERTRALINE HYDROCHLORIDE
     Dosage: 50 MG, 3X/DAY (50 MG 3 TIMES DAILY)
  5. THIORIDAZINE [Suspect]
     Active Substance: THIORIDAZINE
     Dosage: UNK
  6. TRAZODONE [Suspect]
     Active Substance: TRAZODONE HYDROCHLORIDE
     Dosage: 50 MG, DAILY (50 MG/DAY)

REACTIONS (5)
  - Vision blurred [Unknown]
  - Cerebral vasoconstriction [Recovered/Resolved]
  - Dysarthria [Unknown]
  - Cerebrovascular accident [Recovered/Resolved]
  - Headache [Unknown]
